FAERS Safety Report 7200150-0 (Version None)
Quarter: 2010Q4

REPORT INFORMATION
  Report Type: 
  Country: None (occurrence: None)
  Receive Date: 20101228
  Receipt Date: 20101221
  Transmission Date: 20110411
  Serious: Yes (Life-Threatening, Hospitalization)
  Sender: FDA-Public Use
  Company Number: US-EISAI INC.-E7389-01100-CLI-US

PATIENT
  Sex: Female
  Weight: 57 kg

DRUGS (1)
  1. E7389 (BOLD) [Suspect]
     Route: 041
     Dates: start: 20101015

REACTIONS (1)
  - PNEUMONIA [None]
